FAERS Safety Report 23904988 (Version 1)
Quarter: 2024Q2

REPORT INFORMATION
  Report Type: Spontaneous
  Country: US (occurrence: US)
  Receive Date: 20240527
  Receipt Date: 20240527
  Transmission Date: 20240716
  Serious: Yes (Other)
  Sender: FDA-Public Use
  Company Number: US-BIOVITRUM-2024-US-007662

PATIENT
  Age: 91 Year
  Sex: Female

DRUGS (18)
  1. VONJO [Suspect]
     Active Substance: PACRITINIB
     Indication: Thrombocytopenia
     Dosage: ONE CAPSULE ONCE A DAY
     Route: 048
     Dates: start: 20221112
  2. VALACYCLOVIR (VALTREX) [Concomitant]
     Indication: Product used for unknown indication
  3. SODIUM CHLORIDE (OCEAN) [Concomitant]
     Indication: Product used for unknown indication
  4. TYLENOL [Concomitant]
     Active Substance: ACETAMINOPHEN
     Indication: Product used for unknown indication
  5. TUMS [Concomitant]
     Active Substance: CALCIUM CARBONATE
     Indication: Product used for unknown indication
  6. THERA M PLUS (THERAGRAN M) TABS [Concomitant]
     Indication: Product used for unknown indication
  7. POLYETHYLENE GLYCOL (GLYCOLAX) [Concomitant]
     Indication: Product used for unknown indication
     Dosage: PACKET
  8. SENNA (SENOKOT) [Concomitant]
     Indication: Product used for unknown indication
  9. VITAMIN D3 [Concomitant]
     Active Substance: CHOLECALCIFEROL
     Indication: Product used for unknown indication
  10. ZINC SULFATE (ZINCATE) [Concomitant]
     Indication: Product used for unknown indication
     Dosage: (50 ZN)
  11. FERROUS SULFATE [Concomitant]
     Active Substance: FERROUS SULFATE
     Indication: Product used for unknown indication
     Dosage: 65 FE
  12. TENORMIN [Concomitant]
     Active Substance: ATENOLOL
     Indication: Product used for unknown indication
  13. TENORMIN [Concomitant]
     Active Substance: ATENOLOL
  14. ASCORBIC ACID [Concomitant]
     Active Substance: ASCORBIC ACID
     Indication: Product used for unknown indication
  15. VALSARTAN, AMOXICILLIN (AMOXIL) [Concomitant]
     Indication: Product used for unknown indication
  16. D-MANNOSE [Concomitant]
     Indication: Product used for unknown indication
  17. OMNICEF [Concomitant]
     Active Substance: CEFDINIR
     Indication: Product used for unknown indication
  18. AMLODIPINE [Concomitant]
     Active Substance: AMLODIPINE BESYLATE
     Indication: Product used for unknown indication

REACTIONS (2)
  - Off label use [Not Recovered/Not Resolved]
  - Neoplasm malignant [Unknown]

NARRATIVE: CASE EVENT DATE: 20221112
